FAERS Safety Report 11172588 (Version 2)
Quarter: 2016Q2

REPORT INFORMATION
  Report Type: Spontaneous
  Country: US (occurrence: US)
  Receive Date: 20150608
  Receipt Date: 20160606
  Transmission Date: 20160815
  Serious: No
  Sender: FDA-Public Use
  Company Number: US-AMGEN-USASP2015037838

PATIENT
  Sex: Female

DRUGS (1)
  1. PROCRIT [Suspect]
     Active Substance: ERYTHROPOIETIN
     Indication: SICKLE CELL ANAEMIA
     Dosage: UNK
     Route: 065

REACTIONS (4)
  - Sickle cell anaemia [Unknown]
  - Off label use [Unknown]
  - Therapeutic response unexpected [Unknown]
  - Iron overload [Unknown]
